FAERS Safety Report 11716425 (Version 3)
Quarter: 2016Q1

REPORT INFORMATION
  Report Type: Spontaneous
  Country: US (occurrence: US)
  Receive Date: 20151109
  Receipt Date: 20160309
  Transmission Date: 20160525
  Serious: Yes (Death, Hospitalization)
  Sender: FDA-Public Use
  Company Number: US-ASTELLAS-2015US040910

PATIENT
  Age: 62 Year
  Sex: Female
  Weight: 49 kg

DRUGS (4)
  1. ASTAGRAF XL [Suspect]
     Active Substance: TACROLIMUS
     Indication: RENAL TRANSPLANT
     Dosage: 12 MG TOTAL DOSE (5MG X UNKNOWN AND 1 MG X UNKNOWN) UNKNOWN FREQ.
     Route: 048
     Dates: start: 20141126
  2. ASTAGRAF XL [Suspect]
     Active Substance: TACROLIMUS
     Dosage: 12 MG TOTAL DOSE (5MG X UNKNOWN AND 1 MG X UNKNOWN) UNKNOWN FREQ.
     Route: 048
     Dates: start: 20141126
  3. ASTAGRAF XL [Suspect]
     Active Substance: TACROLIMUS
     Route: 048
     Dates: start: 201411, end: 20160302
  4. ASTAGRAF XL [Suspect]
     Active Substance: TACROLIMUS
     Indication: RENAL TRANSPLANT
     Route: 048
     Dates: start: 20140905

REACTIONS (4)
  - Death [Fatal]
  - Pyrexia [Unknown]
  - Pneumonia streptococcal [Unknown]
  - Hospitalisation [Unknown]

NARRATIVE: CASE EVENT DATE: 20151103
